FAERS Safety Report 4651735-7 (Version None)
Quarter: 2005Q2

REPORT INFORMATION
  Report Type: 
  Country: None (occurrence: None)
  Receive Date: 20050404
  Receipt Date: 20041122
  Transmission Date: 20051028
  Serious: No
  Sender: FDA-Public Use
  Company Number: USA041184229

PATIENT
  Sex: Female

DRUGS (3)
  1. CYMBALTA [Suspect]
     Indication: DEPRESSION
     Dosage: 60 MG DAY
     Dates: start: 20041001
  2. KLONOPIN [Concomitant]
  3. NEXIUM [Concomitant]

REACTIONS (7)
  - ANXIETY [None]
  - DEHYDRATION [None]
  - DEPRESSION [None]
  - EYE PAIN [None]
  - KERATOCONJUNCTIVITIS SICCA [None]
  - NAUSEA [None]
  - POLLAKIURIA [None]
